FAERS Safety Report 19451474 (Version 1)
Quarter: 2021Q2

REPORT INFORMATION
  Report Type: Spontaneous
  Country: US (occurrence: US)
  Receive Date: 20210623
  Receipt Date: 20210623
  Transmission Date: 20210717
  Serious: No
  Sender: FDA-Public Use
  Company Number: ALC2020US009892

PATIENT
  Sex: Male

DRUGS (4)
  1. PATADAY ONCE DAILY RELIEF [Suspect]
     Active Substance: OLOPATADINE HYDROCHLORIDE
     Indication: EYE PRURITUS
  2. ALLEGRA [Suspect]
     Active Substance: FEXOFENADINE HYDROCHLORIDE
     Indication: LACRIMATION INCREASED
     Dosage: UNK
     Route: 065
  3. PATADAY ONCE DAILY RELIEF [Suspect]
     Active Substance: OLOPATADINE HYDROCHLORIDE
     Indication: LACRIMATION INCREASED
     Dosage: 2.5 ML, QD
     Route: 065
  4. PATADAY ONCE DAILY RELIEF [Suspect]
     Active Substance: OLOPATADINE HYDROCHLORIDE
     Indication: EYE ALLERGY

REACTIONS (1)
  - Dry mouth [Not Recovered/Not Resolved]
